FAERS Safety Report 26047224 (Version 1)
Quarter: 2025Q4

REPORT INFORMATION
  Report Type: Spontaneous
  Country: EU (occurrence: EU)
  Receive Date: 20251114
  Receipt Date: 20251114
  Transmission Date: 20260118
  Serious: Yes (Other)
  Sender: BOEHRINGER INGELHEIM
  Company Number: None

PATIENT
  Age: 68 Year
  Sex: Female
  Weight: 67 kg

DRUGS (2)
  1. PRAMIPEXOLE [Suspect]
     Active Substance: PRAMIPEXOLE
     Indication: Restless legs syndrome
     Dosage: ONE WEEK WITH HALF THE TABLET AT 10 AT NIGHT AND ONE WEEK WITH THE WHOLE TABLET. DUE TO THE GREAT DISCOMFORT FROM NEGLECTING TO TAKE IT, I HAD TO STOP IT VERY GRADUALLY UNTIL I STOPPED HAVING SYMPTOMS AFTER ONE MORE WEEK. (A QUARTER OF A PILL)
     Route: 048
     Dates: start: 20250922, end: 20251017
  2. CRESTOR 5 mg COMPRIMIDOS RECUBIERTOS CON PELICULA [Concomitant]
     Indication: Blood cholesterol increased
     Route: 048
     Dates: start: 202411, end: 20251017

REACTIONS (2)
  - Pain in extremity [Recovered/Resolved]
  - Muscle spasms [Recovered/Resolved]

NARRATIVE: CASE EVENT DATE: 20251005
